FAERS Safety Report 26125270 (Version 1)
Quarter: 2025Q4

REPORT INFORMATION
  Report Type: Spontaneous
  Country: US (occurrence: None)
  Receive Date: 20251204
  Receipt Date: 20251204
  Transmission Date: 20260117
  Serious: Yes (Hospitalization)
  Sender: FDA-CTU
  Company Number: None

PATIENT
  Age: 57 Year
  Sex: Female
  Weight: 58.8 kg

DRUGS (9)
  1. SYMDEKO [Suspect]
     Active Substance: IVACAFTOR\TEZACAFTOR
     Indication: Cystic fibrosis
     Dosage: OTHER QUANTITY : 100-150-150;?
     Dates: start: 20250819, end: 20251203
  2. DICLOFENAC 1 % GEL [Concomitant]
  3. ESTRADIOL 0.0375MG PATCH [Concomitant]
  4. IPRATROPI/ALB 0.5/3 INH SOL [Concomitant]
  5. PULMOZYME 1 MG/ML INH SOL [Concomitant]
  6. SERTRALINE [Concomitant]
     Active Substance: SERTRALINE HYDROCHLORIDE
  7. SODIUM CHLORIDE 7% NEB SOL [Concomitant]
  8. VALACYCLOVIR 1GM TAB [Concomitant]
  9. ZENPEP 25,000 IU CAP [Concomitant]

REACTIONS (2)
  - Cystic fibrosis [None]
  - Condition aggravated [None]

NARRATIVE: CASE EVENT DATE: 20251203
